FAERS Safety Report 12401604 (Version 1)
Quarter: 2016Q2

REPORT INFORMATION
  Report Type: Spontaneous
  Country: US (occurrence: US)
  Receive Date: 20160525
  Receipt Date: 20160525
  Transmission Date: 20160815
  Serious: Yes (Hospitalization)
  Sender: FDA-Public Use
  Company Number: US-009507513-1605USA010784

PATIENT
  Sex: Male

DRUGS (1)
  1. ZETIA [Suspect]
     Active Substance: EZETIMIBE
     Indication: BLOOD CHOLESTEROL INCREASED
     Dosage: 6 DOSES OF 10 MG
     Route: 048
     Dates: start: 2006

REACTIONS (2)
  - Dyspnoea [Recovering/Resolving]
  - Hypersensitivity [Recovering/Resolving]
